FAERS Safety Report 15462829 (Version 1)
Quarter: 2018Q4

REPORT INFORMATION
  Report Type: Report from Study
  Country: ES (occurrence: ES)
  Receive Date: 20181004
  Receipt Date: 20181004
  Transmission Date: 20190204
  Serious: Yes (Life-Threatening, Hospitalization)
  Sender: FDA-Public Use
  Company Number: ES-TEVA-2018-ES-960714

PATIENT
  Age: 69 Year
  Sex: Male

DRUGS (5)
  1. ROSUVASTATINA  CALCICA (8215CO) [Concomitant]
     Indication: DYSLIPIDAEMIA
     Dosage: 20 MILLIGRAM DAILY;
     Route: 048
     Dates: start: 20140120, end: 20171118
  2. LERCANIDIPINO HIDROCLORURO (2757CH) [Concomitant]
     Indication: HYPERTENSION
     Dosage: 20 MILLIGRAM DAILY;
     Route: 048
     Dates: start: 20160525, end: 20171118
  3. CLEXANE 10.000 UI (100 MG)/ 1 ML SOLUCION INYECTABLE EN JERINGA PRECAR [Interacting]
     Active Substance: ENOXAPARIN SODIUM
     Indication: ISCHAEMIC CARDIOMYOPATHY
     Dosage: 80 MILLIGRAM DAILY;
     Route: 058
     Dates: start: 20171116, end: 20171116
  4. CLOPIDOGREL [Suspect]
     Active Substance: CLOPIDOGREL BISULFATE
     Indication: ISCHAEMIC CARDIOMYOPATHY
     Dosage: 75 MILLIGRAM DAILY;
     Route: 048
     Dates: start: 20171116, end: 20171116
  5. TROMALYT [Interacting]
     Active Substance: ASPIRIN
     Indication: ISCHAEMIC CARDIOMYOPATHY
     Dosage: 150 MILLIGRAM DAILY;
     Route: 048
     Dates: start: 20130108, end: 20171117

REACTIONS (2)
  - Drug interaction [Unknown]
  - Upper gastrointestinal haemorrhage [Recovered/Resolved]

NARRATIVE: CASE EVENT DATE: 20171118
